FAERS Safety Report 5156084-9 (Version None)
Quarter: 2006Q4

REPORT INFORMATION
  Report Type: 
  Country: None (occurrence: None)
  Receive Date: 20061122
  Receipt Date: 20061117
  Transmission Date: 20070319
  Serious: Yes (Other)
  Sender: FDA-Public Use
  Company Number: 2006UW25737

PATIENT
  Age: 86 Year
  Sex: Female

DRUGS (2)
  1. ARIMIDEX [Suspect]
     Indication: BREAST CANCER STAGE II
     Route: 048
     Dates: start: 20020101
  2. FOSOMAX [Concomitant]

REACTIONS (3)
  - ARTHRALGIA [None]
  - COLON CANCER STAGE III [None]
  - NAUSEA [None]
